FAERS Safety Report 24438795 (Version 1)
Quarter: 2024Q4

REPORT INFORMATION
  Report Type: Spontaneous
  Country: US (occurrence: None)
  Receive Date: 20241014
  Receipt Date: 20241014
  Transmission Date: 20250114
  Serious: Yes (Other)
  Sender: Public
  Company Number: None

PATIENT
  Age: 40 Year
  Sex: Male
  Weight: 65.7 kg

DRUGS (4)
  1. UNSPECIFIED INGREDIENT [Suspect]
     Active Substance: UNSPECIFIED INGREDIENT
     Indication: Muscle tightness
     Dosage: OTHER QUANTITY : 1 POUCH;?FREQUENCY : AS NEEDED;?OTHER ROUTE : SITS IN LIP LIKE CHEW;?
     Route: 050
     Dates: start: 20241013, end: 20241013
  2. UNSPECIFIED INGREDIENT [Suspect]
     Active Substance: UNSPECIFIED INGREDIENT
     Indication: Anxiety
  3. UNSPECIFIED INGREDIENT [Suspect]
     Active Substance: UNSPECIFIED INGREDIENT
  4. EDIBLES [Concomitant]

REACTIONS (11)
  - Euphoric mood [None]
  - Dizziness [None]
  - Dizziness [None]
  - Gait disturbance [None]
  - Muscular weakness [None]
  - Dry mouth [None]
  - Dehydration [None]
  - Nausea [None]
  - Vomiting [None]
  - Tremor [None]
  - Asthenia [None]

NARRATIVE: CASE EVENT DATE: 20241013
